FAERS Safety Report 9244482 (Version 5)
Quarter: 2013Q4

REPORT INFORMATION
  Report Type: Report from Study
  Country: BR (occurrence: BR)
  Receive Date: 20130422
  Receipt Date: 20131129
  Transmission Date: 20140711
  Serious: Yes (Hospitalization)
  Sender: FDA-Public Use
  Company Number: PHHY2013BR037749

PATIENT
  Sex: Female

DRUGS (2)
  1. FORASEQ [Suspect]
     Indication: ASTHMA
     Dosage: 1 DF,QD
  2. FORASEQ [Suspect]
     Dosage: 1 DF, BID

REACTIONS (4)
  - Increased bronchial secretion [Recovering/Resolving]
  - Influenza [Recovering/Resolving]
  - Dyspnoea [Recovering/Resolving]
  - Device malfunction [Recovering/Resolving]
